FAERS Safety Report 8129485-4 (Version None)
Quarter: 2012Q1

REPORT INFORMATION
  Report Type: 
  Country: None (occurrence: None)
  Receive Date: 20120210
  Receipt Date: 20120206
  Transmission Date: 20120608
  Serious: Yes (Hospitalization, Other)
  Sender: FDA-Public Use
  Company Number: US-AMGEN-USASP2012004178

PATIENT
  Age: 75 Year
  Sex: Female

DRUGS (6)
  1. FOLIC ACID [Concomitant]
  2. IRON [Concomitant]
  3. CALCIUM [Concomitant]
  4. PROLIA [Suspect]
     Indication: OSTEOPOROSIS POSTMENOPAUSAL
     Dosage: UNK UNK, Q6MO
     Dates: start: 20110101
  5. VITAMIN D [Concomitant]
  6. VITAMINS NOS [Concomitant]

REACTIONS (3)
  - ANAEMIA [None]
  - ANAEMIA HAEMOLYTIC AUTOIMMUNE [None]
  - UPPER RESPIRATORY TRACT INFECTION [None]
